FAERS Safety Report 8620550 (Version 2)
Quarter: 2012Q4

REPORT INFORMATION
  Report Type: Report from Study
  Country: DK (occurrence: DK)
  Receive Date: 20120618
  Receipt Date: 20120926
  Transmission Date: 20130627
  Serious: Yes (Death, Life-Threatening, Hospitalization, Other)
  Sender: FDA-Public Use
  Company Number: DK-BAXTER-2012BAX008080

PATIENT
  Age: 57 Year
  Sex: Male
  Weight: 75 kg

DRUGS (7)
  1. CYCLOPHOSPHAMIDE [Suspect]
     Indication: CHRONIC LYMPHOCYTIC LEUKAEMIA
     Route: 042
     Dates: start: 20100825, end: 20101119
  2. RITUXIMAB [Suspect]
     Indication: CHRONIC LYMPHOCYTIC LEUKEMIA
     Route: 040
     Dates: start: 20100824, end: 20101117
  3. FLUDARABINE [Suspect]
     Indication: CHRONIC LYMPHOCYTIC LEUKEMIA
     Route: 042
     Dates: start: 20100825, end: 20101119
  4. ACICLODAN [Concomitant]
     Indication: DRUG USE FOR UNKNOWN INDICATION
     Route: 065
     Dates: start: 20100907, end: 20100924
  5. ACICLODAN [Concomitant]
     Route: 065
     Dates: start: 20101014, end: 20110103
  6. ACICLODAN [Concomitant]
     Route: 065
     Dates: start: 20110102, end: 20110109
  7. SULFAMETHOXAZOLE W/TRIMETHOPRIM [Concomitant]
     Indication: DRUG USE FOR UNKNOWN INDICATION
     Route: 065
     Dates: start: 20100824, end: 20101103

REACTIONS (4)
  - Leukoencephalopathy [Not Recovered/Not Resolved]
  - Infection [Recovered/Resolved]
  - Febrile neutropenia [Unknown]
  - Neutropenic infection [Fatal]
